FAERS Safety Report 5993859-8 (Version None)
Quarter: 2008Q4

REPORT INFORMATION
  Report Type: 
  Country: None (occurrence: None)
  Receive Date: 20081212
  Receipt Date: 20080905
  Transmission Date: 20090506
  Serious: No
  Sender: FDA-Public Use
  Company Number: US-ABBOTT-08P-163-0443497-00

PATIENT
  Sex: Female
  Weight: 63.56 kg

DRUGS (5)
  1. HUMIRA [Suspect]
     Indication: RHEUMATOID ARTHRITIS
     Route: 058
     Dates: start: 20070401, end: 20080224
  2. METHOTREXATE [Suspect]
     Indication: RHEUMATOID ARTHRITIS
     Dates: end: 20080101
  3. CELECOXIB [Concomitant]
     Indication: PAIN
     Route: 048
  4. FOLIC ACID [Concomitant]
     Indication: DRUG USE FOR UNKNOWN INDICATION
  5. OMEPRAZOLE [Concomitant]
     Indication: HIATUS HERNIA
     Route: 048

REACTIONS (7)
  - ABSCESS ORAL [None]
  - EYE PAIN [None]
  - GINGIVAL INFECTION [None]
  - LIVER FUNCTION TEST ABNORMAL [None]
  - SINUS HEADACHE [None]
  - TOOTH INFECTION [None]
  - URINARY TRACT INFECTION [None]
